FAERS Safety Report 10562681 (Version 1)
Quarter: 2014Q4

REPORT INFORMATION
  Report Type: Spontaneous
  Country: US (occurrence: None)
  Receive Date: 20141103
  Receipt Date: 20141103
  Transmission Date: 20150529
  Serious: Yes (Other)
  Sender: FDA-Public Use
  Company Number: None

PATIENT
  Age: 44 Year
  Sex: Male
  Weight: 117.94 kg

DRUGS (5)
  1. LIORESAL [Suspect]
     Active Substance: BACLOFEN
     Indication: BACK PAIN
     Dosage: 1 PILL, BY MOUTH;
     Dates: start: 20140129, end: 20140219
  2. TRAZODONE [Concomitant]
     Active Substance: TRAZODONE HYDROCHLORIDE
  3. CPAP/GABAPENTIN [Concomitant]
  4. BUPROPION [Concomitant]
     Active Substance: BUPROPION
  5. GEMFIBROZIL. [Concomitant]
     Active Substance: GEMFIBROZIL

REACTIONS (2)
  - Ear discomfort [None]
  - Tinnitus [None]

NARRATIVE: CASE EVENT DATE: 20140219
